FAERS Safety Report 4287948-6 (Version None)
Quarter: 2004Q1

REPORT INFORMATION
  Report Type: 
  Country: None (occurrence: None)
  Receive Date: 20040209
  Receipt Date: 20031105
  Transmission Date: 20041129
  Serious: Yes (Other)
  Sender: FDA-Public Use
  Company Number: US-GLAXOSMITHKLINE-A0433139A

PATIENT
  Age: 58 Year
  Sex: Female

DRUGS (5)
  1. PAXIL [Suspect]
     Indication: DEPRESSION
     Dosage: 25MG PER DAY
     Route: 048
     Dates: start: 20020601
  2. TEMAZEPAM [Concomitant]
     Indication: SLEEP DISORDER
  3. GLUCOVANCE [Concomitant]
  4. PRILOSEC [Concomitant]
  5. AVAPRO [Concomitant]

REACTIONS (2)
  - RETINAL HAEMORRHAGE [None]
  - VISUAL DISTURBANCE [None]
